FAERS Safety Report 6019646-2 (Version None)
Quarter: 2008Q4

REPORT INFORMATION
  Report Type: 
  Country: None (occurrence: None)
  Receive Date: 20081224
  Receipt Date: 20081218
  Transmission Date: 20090506
  Serious: Yes (Other)
  Sender: FDA-Public Use
  Company Number: CH-ASTRAZENECA-2008PK02759

PATIENT
  Age: 26 Year
  Sex: Female

DRUGS (6)
  1. PROPOFOL [Suspect]
     Indication: SEDATIVE THERAPY
     Route: 042
     Dates: start: 20060126, end: 20060126
  2. VOLTAREN [Suspect]
     Indication: PAIN
     Route: 048
     Dates: start: 20060126, end: 20060101
  3. PONSTAN [Suspect]
     Indication: PAIN
     Route: 048
     Dates: start: 20060126, end: 20060101
  4. MIDAZOLAM HCL [Suspect]
     Indication: PAIN
     Route: 042
     Dates: start: 20060126, end: 20060126
  5. FENTANYL-100 [Suspect]
     Indication: ANAESTHESIA
     Route: 042
     Dates: start: 20060126, end: 20060126
  6. PRO DAFALGAN [Suspect]
     Indication: PAIN
     Route: 042
     Dates: start: 20060126, end: 20060101

REACTIONS (2)
  - ABORTION SPONTANEOUS [None]
  - DRUG EXPOSURE DURING PREGNANCY [None]
